FAERS Safety Report 4668491-9 (Version None)
Quarter: 2005Q2

REPORT INFORMATION
  Report Type: 
  Country: None (occurrence: None)
  Receive Date: 20050523
  Receipt Date: 20040615
  Transmission Date: 20051028
  Serious: Yes (Other)
  Sender: FDA-Public Use
  Company Number: PHBS2004IT07931

PATIENT
  Age: 53 Year
  Sex: Female

DRUGS (3)
  1. ZOLEDRONATE [Suspect]
     Indication: MULTIPLE MYELOMA
     Dosage: 4 MG, 28 DAYS
     Route: 042
  2. THALIDOMIDE [Suspect]
     Dosage: 100 MG/D
     Route: 065
  3. DEXAMETASON [Concomitant]
     Route: 065
     Dates: start: 20031001

REACTIONS (8)
  - ASEPTIC NECROSIS BONE [None]
  - BONE DEBRIDEMENT [None]
  - BONE DISORDER [None]
  - BONE LESION [None]
  - GINGIVITIS [None]
  - HAEMORRHAGE [None]
  - MUCOSAL INFLAMMATION [None]
  - PRIMARY SEQUESTRUM [None]
